FAERS Safety Report 8408812 (Version 2)
Quarter: 2013Q2

REPORT INFORMATION
  Report Type: Spontaneous
  Country: US (occurrence: None)
  Receive Date: 20111227
  Receipt Date: 20120426
  Transmission Date: 20140414
  Serious: No
  Sender: FDA-Public Use
  Company Number: PHEH2011US05040

PATIENT
  Age: 43 Year
  Sex: Female
  Weight: 86.2 kg

DRUGS (2)
  1. GILENYA [Suspect]
     Dosage: 0.5 MG, QD, ORAL
     Route: 048
  2. SERTRALINE HYDROCHLORIDE [Concomitant]

REACTIONS (4)
  - SPINAL DISORDER [None]
  - HYPOAESTHESIA [None]
  - Balance disorder [None]
  - SENSORY DISTURBANCE [None]
